FAERS Safety Report 6555912-X (Version None)
Quarter: 2010Q1

REPORT INFORMATION
  Report Type: 
  Country: None (occurrence: None)
  Receive Date: 20100128
  Receipt Date: 20100119
  Transmission Date: 20100710
  Serious: Yes (Other)
  Sender: FDA-Public Use
  Company Number: FR-JNJFOC-20090702386

PATIENT
  Sex: Female
  Weight: 52 kg

DRUGS (4)
  1. EPITOMAX [Suspect]
     Indication: DRUG USE FOR UNKNOWN INDICATION
     Route: 048
  2. EPITOMAX [Suspect]
     Route: 048
  3. EPITOMAX [Suspect]
     Route: 048
  4. LAMICTAL [Suspect]
     Indication: EPILEPSY
     Route: 065

REACTIONS (3)
  - BLOOD ALKALINE PHOSPHATASE INCREASED [None]
  - CAESAREAN SECTION [None]
  - DRUG EXPOSURE DURING PREGNANCY [None]
